FAERS Safety Report 22166434 (Version 2)
Quarter: 2023Q2

REPORT INFORMATION
  Report Type: Spontaneous
  Country: US (occurrence: None)
  Receive Date: 20230403
  Receipt Date: 20230417
  Transmission Date: 20230722
  Serious: No
  Sender: FDA-Public Use
  Company Number: US-USAntibiotics-000143

PATIENT
  Age: 67 Year
  Sex: Female
  Weight: 61.2 kg

DRUGS (11)
  1. AMOXICILLIN\CLAVULANATE POTASSIUM [Suspect]
     Active Substance: AMOXICILLIN\CLAVULANATE POTASSIUM
     Indication: Productive cough
     Dosage: 875 -125MG,1 TABLET TWICE A DAY FOR 10 DAYS
     Route: 048
     Dates: start: 20230308, end: 20230311
  2. TYVASO [Suspect]
     Active Substance: TREPROSTINIL
     Indication: Pulmonary arterial hypertension
     Dosage: 72 MICROGRAM (12 BREATHS), FOUR TIMES A DAY
     Dates: start: 20221004
  3. TYVASO DPI [Suspect]
     Active Substance: TREPROSTINIL
     Indication: Pulmonary arterial hypertension
     Dosage: 16 MICROGRAM, VIA INHALATION ROUTE, FOUR TIMES A DAY
  4. TYVASO DPI [Suspect]
     Active Substance: TREPROSTINIL
     Indication: Pulmonary arterial hypertension
  5. WARFARIN SODIUM [Concomitant]
     Active Substance: WARFARIN SODIUM
     Indication: Pulmonary hypertension
  6. ELIQUIS [Concomitant]
     Active Substance: APIXABAN
     Indication: Pulmonary hypertension
  7. ADEMPAS [Concomitant]
     Active Substance: RIOCIGUAT
     Indication: Pulmonary hypertension
  8. OPSUMIT [Concomitant]
     Active Substance: MACITENTAN
     Indication: Pulmonary hypertension
  9. TYVASO [Suspect]
     Active Substance: TREPROSTINIL
     Indication: Pulmonary arterial hypertension
  10. TYVASO [Suspect]
     Active Substance: TREPROSTINIL
     Indication: Pulmonary arterial hypertension
     Dates: start: 20221004
  11. TYVASO DPI [Suspect]
     Active Substance: TREPROSTINIL
     Indication: Pulmonary arterial hypertension

REACTIONS (8)
  - Dizziness [Recovered/Resolved]
  - Vitreous floaters [Recovered/Resolved]
  - Drug hypersensitivity [Recovered/Resolved]
  - Sputum discoloured [Recovered/Resolved]
  - Diarrhoea [Recovered/Resolved]
  - Treatment noncompliance [Recovered/Resolved]
  - Cough [Recovered/Resolved]
  - Productive cough [Recovered/Resolved]

NARRATIVE: CASE EVENT DATE: 20230201
